FAERS Safety Report 6175569-X (Version None)
Quarter: 2009Q2

REPORT INFORMATION
  Report Type: 
  Country: None (occurrence: None)
  Receive Date: 20090501
  Receipt Date: 20090421
  Transmission Date: 20091009
  Serious: Yes (Other)
  Sender: FDA-Public Use
  Company Number: CA-JNJFOC-20090404930

PATIENT
  Age: 3 Decade
  Sex: Female

DRUGS (5)
  1. PREZISTA [Suspect]
     Indication: HIV INFECTION
     Route: 048
  2. INTELENCE [Suspect]
     Indication: HIV INFECTION
     Route: 048
  3. VIRACEPT [Suspect]
     Indication: HIV INFECTION
     Route: 065
  4. COMBIVIR [Suspect]
     Indication: HIV INFECTION
     Route: 064
  5. EPIVIR [Suspect]
     Indication: HIV INFECTION
     Route: 065

REACTIONS (5)
  - DEPRESSION [None]
  - FATIGUE [None]
  - HEADACHE [None]
  - INSOMNIA [None]
  - NAUSEA [None]
